FAERS Safety Report 19957805 (Version 2)
Quarter: 2021Q4

REPORT INFORMATION
  Report Type: Spontaneous
  Country: US (occurrence: US)
  Receive Date: 20211015
  Receipt Date: 20211123
  Transmission Date: 20220303
  Serious: No
  Sender: FDA-Public Use
  Company Number: US-SAGE-2021SAGE000092

PATIENT
  Age: 31 Year
  Sex: Female

DRUGS (3)
  1. ZULRESSO [Suspect]
     Active Substance: BREXANOLONE
     Indication: Perinatal depression
     Dosage: UNK
     Route: 042
     Dates: start: 20210930, end: 20210930
  2. ZULRESSO [Suspect]
     Active Substance: BREXANOLONE
     Dosage: UNK
     Route: 042
     Dates: start: 20210930, end: 20211001
  3. ZULRESSO [Suspect]
     Active Substance: BREXANOLONE
     Dosage: 60 MCG/KG
     Route: 042
     Dates: start: 20211001, end: 20211003

REACTIONS (2)
  - Product preparation error [Unknown]
  - Device programming error [Unknown]

NARRATIVE: CASE EVENT DATE: 20210930
